FAERS Safety Report 20051156 (Version 7)
Quarter: 2022Q4

REPORT INFORMATION
  Report Type: Report from Study
  Country: US (occurrence: US)
  Receive Date: 20211110
  Receipt Date: 20221124
  Transmission Date: 20230113
  Serious: Yes (Other)
  Sender: FDA-Public Use
  Company Number: US-UCBSA-2021051850

PATIENT
  Age: 44 Year
  Sex: Female

DRUGS (7)
  1. CERTOLIZUMAB PEGOL [Suspect]
     Active Substance: CERTOLIZUMAB PEGOL
     Indication: Rheumatoid arthritis
     Dosage: 400 MILLIGRAM, EV 4 WEEKS
     Route: 058
     Dates: start: 20210821, end: 2021
  2. CERTOLIZUMAB PEGOL [Suspect]
     Active Substance: CERTOLIZUMAB PEGOL
     Dosage: 400 MILLIGRAM, EV 4 WEEKS
     Route: 058
     Dates: start: 20211105
  3. METHOTREXATE [Concomitant]
     Active Substance: METHOTREXATE
     Indication: Product used for unknown indication
     Dosage: UNK
  4. METHOTREXATE [Concomitant]
     Active Substance: METHOTREXATE
     Dosage: 4 DOSAGE FORM, WEEKLY (QW)
  5. ZITHROMAX [Concomitant]
     Active Substance: AZITHROMYCIN DIHYDRATE
     Indication: Upper respiratory tract infection
  6. COVID-19 VACCINE [Concomitant]
     Indication: Product used for unknown indication
     Dosage: UNK
     Dates: start: 20220613
  7. INFLUENZA VIRUS VACCINE [Concomitant]
     Active Substance: INFLUENZA VIRUS VACCINE
     Indication: Product used for unknown indication
     Dosage: UNK
     Dates: start: 20221115

REACTIONS (19)
  - Upper respiratory tract infection [Recovered/Resolved]
  - Pneumonia [Recovered/Resolved]
  - Rheumatoid arthritis [Unknown]
  - Ankylosing spondylitis [Unknown]
  - Psoriatic arthropathy [Unknown]
  - Bronchitis [Recovered/Resolved]
  - Rhinitis allergic [Not Recovered/Not Resolved]
  - Injection site pain [Recovering/Resolving]
  - SARS-CoV-2 test positive [Unknown]
  - COVID-19 [Recovered/Resolved]
  - Musculoskeletal pain [Not Recovered/Not Resolved]
  - COVID-19 immunisation [Unknown]
  - Psoriasis [Unknown]
  - Attention deficit hyperactivity disorder [Unknown]
  - Headache [Recovering/Resolving]
  - Malaise [Recovering/Resolving]
  - Product dose omission issue [Unknown]
  - Product storage error [Unknown]
  - Treatment noncompliance [Unknown]

NARRATIVE: CASE EVENT DATE: 20211023
